FAERS Safety Report 6061716-7 (Version None)
Quarter: 2009Q1

REPORT INFORMATION
  Report Type: 
  Country: None (occurrence: None)
  Receive Date: 20090202
  Receipt Date: 20090123
  Transmission Date: 20090719
  Serious: Yes (Hospitalization)
  Sender: FDA-Public Use
  Company Number: US-BRISTOL-MYERS SQUIBB COMPANY-14488563

PATIENT
  Sex: Female

DRUGS (2)
  1. CORGARD [Suspect]
     Indication: HYPERTENSION
     Dosage: LATER STARTED 40MG DAILY
     Route: 048
  2. CORGARD [Suspect]
     Indication: ARRHYTHMIA
     Dosage: LATER STARTED 40MG DAILY
     Route: 048

REACTIONS (3)
  - BLOOD PRESSURE INCREASED [None]
  - NERVOUSNESS [None]
  - PANIC ATTACK [None]
